FAERS Safety Report 8171631-0 (Version None)
Quarter: 2012Q1

REPORT INFORMATION
  Report Type: 
  Country: None (occurrence: None)
  Receive Date: 20120104
  Receipt Date: 20111103
  Transmission Date: 20120608
  Serious: No
  Sender: FDA-Public Use
  Company Number: 2011HGS-002609

PATIENT
  Age: 63 Year
  Sex: Female

DRUGS (9)
  1. BENLYSTA [Suspect]
     Indication: SYSTEMIC LUPUS ERYTHEMATOSUS
     Dosage: 10 MG/KG, 1 IN 2 WK, INTRAVENOUS DRIP
     Route: 041
     Dates: start: 20110525, end: 20110622
  2. ELOCON [Concomitant]
  3. MAXZIDE (DYAZIDE) (HYDROCHLOROTHIAZIDE, TRIAMTERENE) [Concomitant]
  4. LIDODERM [Concomitant]
  5. MACROBID [Concomitant]
  6. PREDNISONE TAB [Concomitant]
  7. CELEBREX [Concomitant]
  8. RECLAST [Concomitant]
  9. PLAQUENIL [Concomitant]

REACTIONS (3)
  - RASH [None]
  - BLISTER [None]
  - URINARY TRACT INFECTION [None]
